FAERS Safety Report 9727789 (Version 1)
Quarter: 2013Q4

REPORT INFORMATION
  Report Type: Report from Study
  Country: US (occurrence: US)
  Receive Date: 20131204
  Receipt Date: 20131204
  Transmission Date: 20140711
  Serious: Yes (Other)
  Sender: FDA-Public Use
  Company Number: US-ROCHE-1309623

PATIENT
  Sex: Male
  Weight: 45.4 kg

DRUGS (2)
  1. NUTROPIN AQ [Suspect]
     Indication: GROWTH HORMONE DEFICIENCY
     Route: 058
     Dates: start: 200911
  2. NUTROPIN AQ [Suspect]
     Dosage: 0.375 MG/KG/WEEK
     Route: 058

REACTIONS (1)
  - Growth retardation [Unknown]
